FAERS Safety Report 4858240-3 (Version None)
Quarter: 2005Q4

REPORT INFORMATION
  Report Type: 
  Country: None (occurrence: None)
  Receive Date: 20051219
  Receipt Date: 20050323
  Transmission Date: 20060501
  Serious: No
  Sender: FDA-Public Use
  Company Number: US-GLAXOSMITHKLINE-A0550929A

PATIENT
  Age: 56 Year
  Sex: Female

DRUGS (3)
  1. NICODERM CQ [Suspect]
     Dates: start: 20050228
  2. NICODERM CQ [Suspect]
     Dates: start: 20050228
  3. WELLBUTRIN [Concomitant]

REACTIONS (8)
  - CHEST DISCOMFORT [None]
  - CHEST PAIN [None]
  - DYSPNOEA [None]
  - NERVOUSNESS [None]
  - NICOTINE DEPENDENCE [None]
  - PAIN IN EXTREMITY [None]
  - SENSATION OF HEAVINESS [None]
  - TENSION [None]
